FAERS Safety Report 24416851 (Version 1)
Quarter: 2024Q4

REPORT INFORMATION
  Report Type: Spontaneous
  Country: CN (occurrence: CN)
  Receive Date: 20241009
  Receipt Date: 20241009
  Transmission Date: 20250115
  Serious: Yes (Other)
  Sender: BAXTER
  Company Number: None

PATIENT
  Age: 54 Year
  Sex: Female
  Weight: 53 kg

DRUGS (5)
  1. CYCLOPHOSPHAMIDE [Suspect]
     Active Substance: CYCLOPHOSPHAMIDE
     Indication: Breast cancer female
     Dosage: 0.9 G, ONE TIME IN ONE DAY, DILUTED WITH 0.9% SODIUM CHLORIDE 50ML, DAY 1
     Route: 041
     Dates: start: 20240814, end: 20240814
  2. SODIUM CHLORIDE [Suspect]
     Active Substance: SODIUM CHLORIDE
     Indication: Vehicle solution use
     Dosage: 0.9% 100 ML, ONE TIME IN ONE DAY, ALONG WITH STERILE WATER FOR INJECTION 50ML, USED TO DILUTE EPIRUB
     Route: 041
     Dates: start: 20240814, end: 20240814
  3. SODIUM CHLORIDE [Suspect]
     Active Substance: SODIUM CHLORIDE
     Dosage: 0.9% 50 ML, ONE TIME IN ONE DAY, USED TO DILUTE CYCLOPHOSPHAMIDE 0.9G, DAY 1
     Route: 041
     Dates: start: 20240814, end: 20240814
  4. EPIRUBICIN HYDROCHLORIDE [Suspect]
     Active Substance: EPIRUBICIN HYDROCHLORIDE
     Indication: Breast cancer female
     Dosage: 120 MG, ONE TIME IN ONE DAY, DILUTED WITH 0.9% SODIUM CHLORIDE 100 ML AND STERILE WATER FOR INJECTIO
     Route: 041
     Dates: start: 20240814, end: 20240814
  5. WATER FOR INJECTION [Suspect]
     Active Substance: WATER
     Indication: Medication dilution
     Dosage: 50 ML, ONE TIME IN ONE DAY, ALONG WITH 0.9% SODIUM CHLORIDE INJECTION 100ML USED TO DILUTE EPIRUBICI
     Route: 041
     Dates: start: 20240814, end: 20240814

REACTIONS (1)
  - Leukopenia [Unknown]

NARRATIVE: CASE EVENT DATE: 20240903
